FAERS Safety Report 4526356-7 (Version None)
Quarter: 2004Q4

REPORT INFORMATION
  Report Type: 
  Country: None (occurrence: None)
  Receive Date: 20041213
  Receipt Date: 20041202
  Transmission Date: 20050328
  Serious: Yes (Hospitalization, Other)
  Sender: FDA-Public Use
  Company Number: HQWYE737402DEC04

PATIENT
  Age: 74 Year
  Sex: Male

DRUGS (10)
  1. CORDARONE [Suspect]
     Indication: ATRIAL TACHYCARDIA
     Dosage: 200 MG 3X PER 1 DAY ORAL
     Route: 048
     Dates: start: 20040414, end: 20040421
  2. QUINAPRIL HCL [Concomitant]
  3. SIMVASTATIN [Concomitant]
  4. SOMAC (PANTOPRAZOLE) [Concomitant]
  5. ASPIRIN [Concomitant]
  6. NORFLOXACIN [Concomitant]
  7. CARVEDILOL [Concomitant]
  8. BUDESONIDE (BUDESONIDE) [Concomitant]
  9. WARFARIN SODIUM [Concomitant]
  10. ENOXAPARIN SODIUM [Concomitant]

REACTIONS (6)
  - DYSGEUSIA [None]
  - HYPERHIDROSIS [None]
  - NAUSEA [None]
  - NIGHTMARE [None]
  - PERIPHERAL COLDNESS [None]
  - VOMITING [None]
